FAERS Safety Report 7834104-8 (Version None)
Quarter: 2011Q4

REPORT INFORMATION
  Report Type: 
  Country: None (occurrence: None)
  Receive Date: 20111024
  Receipt Date: 20111014
  Transmission Date: 20120403
  Serious: Yes (Hospitalization)
  Sender: FDA-Public Use
  Company Number: PT-SANOFI-AVENTIS-2011SA065187

PATIENT
  Age: 74 Year
  Sex: Male
  Weight: 95.5 kg

DRUGS (7)
  1. ALLOPURINOL [Concomitant]
     Dates: start: 20091123
  2. INDAPAMIDE [Concomitant]
     Dates: start: 20091123
  3. ATORVASTATIN [Suspect]
     Dates: start: 20091123
  4. BLINDED THERAPY [Suspect]
     Indication: ACUTE CORONARY SYNDROME
     Route: 065
     Dates: start: 20091126
  5. PERINDOPRIL ERBUMINE [Suspect]
     Dates: start: 20091123
  6. CARVEDILOL [Suspect]
     Dates: start: 20091123
  7. ISOSORBIDE DINITRATE [Concomitant]
     Dates: start: 20091123

REACTIONS (2)
  - HAEMATURIA [None]
  - RENAL NEOPLASM [None]
